FAERS Safety Report 5079360-7 (Version None)
Quarter: 2006Q3

REPORT INFORMATION
  Report Type: 
  Country: None (occurrence: None)
  Receive Date: 20060809
  Receipt Date: 20060728
  Transmission Date: 20061208
  Serious: Yes (Death)
  Sender: FDA-Public Use
  Company Number: 2006088828

PATIENT
  Age: 44 Year
  Sex: Male

DRUGS (5)
  1. NORVASC [Suspect]
     Indication: HYPERTENSION
     Dosage: 1200 MG (10 MG), ORAL
     Route: 048
     Dates: start: 20060101
  2. AMLODIPINE [Suspect]
     Indication: HYPERTENSION
     Dosage: 900 MG (10 MG), ORAL
     Route: 048
     Dates: start: 20060101
  3. BENICAR [Suspect]
     Indication: HYPERTENSION
     Dosage: 2400 MG (40 MG), ORAL
     Route: 048
     Dates: start: 20060101
  4. AMITRIPTYLINE (AMITRIPTYLINE) [Concomitant]
  5. EFFEXOR XR [Concomitant]

REACTIONS (11)
  - ARTERIOSCLEROSIS CORONARY ARTERY [None]
  - CARDIOMEGALY [None]
  - COMPLETED SUICIDE [None]
  - CONTUSION [None]
  - EXCORIATION [None]
  - FOAMING AT MOUTH [None]
  - LOSS OF CONSCIOUSNESS [None]
  - MEDICATION RESIDUE [None]
  - OEDEMA [None]
  - OVERDOSE [None]
  - PULMONARY CONGESTION [None]
